FAERS Safety Report 20784358 (Version 1)
Quarter: 2022Q2

REPORT INFORMATION
  Report Type: Spontaneous
  Country: ES (occurrence: ES)
  Receive Date: 20220504
  Receipt Date: 20220504
  Transmission Date: 20220721
  Serious: Yes (Other)
  Sender: FDA-Public Use
  Company Number: None

PATIENT
  Age: 57 Year
  Sex: Male

DRUGS (6)
  1. DOVATO [Suspect]
     Active Substance: DOLUTEGRAVIR SODIUM\LAMIVUDINE
     Indication: HIV infection
     Dosage: QD (1.0 COMP W/24H)
     Route: 048
     Dates: start: 20201123, end: 20210118
  2. EBASTEL FORTE [Concomitant]
     Indication: Dermatitis atopic
     Dosage: 20.0 MG (20.0 MG DECE)
     Route: 048
     Dates: start: 20171011
  3. ALLOPURINOL [Concomitant]
     Active Substance: ALLOPURINOL
     Indication: Diverticulitis
     Dosage: 100.0 MG, QD (100.0 MG DE)
     Route: 048
     Dates: start: 20191212
  4. RAMIPRIL [Concomitant]
     Active Substance: RAMIPRIL
     Indication: Hypertension
     Dosage: 5.0 MG, QD (5.0MG DE)
     Route: 048
     Dates: start: 20180324
  5. OMEPRAZOLE [Concomitant]
     Active Substance: OMEPRAZOLE
     Indication: Dyspepsia
     Dosage: 20.0 MG,QD (20.0 MG A-DE)
     Route: 048
     Dates: start: 20160607
  6. PARACETAMOL CINFA [Concomitant]
     Indication: Product used for unknown indication
     Dosage: 1.0 G (1.0G CE)
     Route: 048
     Dates: start: 20140204

REACTIONS (3)
  - Taste disorder [Recovered/Resolved]
  - Dysgeusia [Recovered/Resolved]
  - Dysgeusia [Recovered/Resolved]

NARRATIVE: CASE EVENT DATE: 20201123
